FAERS Safety Report 21950590 (Version 1)
Quarter: 2023Q1

REPORT INFORMATION
  Report Type: Spontaneous
  Country: US (occurrence: None)
  Receive Date: 20230203
  Receipt Date: 20230203
  Transmission Date: 20230417
  Serious: No
  Sender: FDA-Public Use
  Company Number: US-Eisai Medical Research-EC-2023-132044

PATIENT
  Age: 42 Year
  Sex: Female

DRUGS (2)
  1. FYCOMPA [Suspect]
     Active Substance: PERAMPANEL
     Indication: Seizure
     Route: 048
     Dates: start: 20221006
  2. FYCOMPA [Suspect]
     Active Substance: PERAMPANEL
     Route: 048

REACTIONS (6)
  - Suicidal ideation [Unknown]
  - Anxiety [Unknown]
  - Lethargy [Unknown]
  - Seizure [Unknown]
  - Feeling abnormal [Unknown]
  - Violence-related symptom [Unknown]
